FAERS Safety Report 17760519 (Version 3)
Quarter: 2020Q3

REPORT INFORMATION
  Report Type: Report from Study
  Country: IL (occurrence: IL)
  Receive Date: 20200508
  Receipt Date: 20200714
  Transmission Date: 20201102
  Serious: Yes (Congenital Anomaly)
  Sender: FDA-Public Use
  Company Number: IL-GILEAD-2020-0464266

PATIENT
  Sex: Female

DRUGS (3)
  1. ISENTRESS [Suspect]
     Active Substance: RALTEGRAVIR POTASSIUM
     Indication: HIV INFECTION
     Dosage: UNK
     Route: 064
     Dates: start: 20191225
  2. EMTRICITABINE;TENOFOVIR DISOPROXIL FUMARATE [Suspect]
     Active Substance: EMTRICITABINE\TENOFOVIR DISOPROXIL FUMARATE
     Indication: HIV INFECTION
     Dosage: UNK
     Route: 064
     Dates: start: 20191225
  3. BICTEGRAVIR W/EMTRICITABINE/TENOFOVIR ALAFENAMIDE [Suspect]
     Active Substance: BICTEGRAVIR\EMTRICITABINE\TENOFOVIR ALAFENAMIDE
     Indication: HIV INFECTION
     Dosage: UNK
     Route: 064
     Dates: end: 20191225

REACTIONS (3)
  - Ovarian cyst [Recovering/Resolving]
  - Foetal exposure during pregnancy [Unknown]
  - Cyst [Recovering/Resolving]

NARRATIVE: CASE EVENT DATE: 202004
